FAERS Safety Report 7314103-5 (Version None)
Quarter: 2011Q1

REPORT INFORMATION
  Report Type: 
  Country: None (occurrence: None)
  Receive Date: 20110225
  Receipt Date: 20100504
  Transmission Date: 20110831
  Serious: Yes (Other)
  Sender: FDA-Public Use
  Company Number: US-MYLANLABS-2010S1007850

PATIENT
  Age: 74 Year
  Sex: Female

DRUGS (6)
  1. CAPTOPRIL [Concomitant]
     Indication: HYPERTENSION
     Route: 048
  2. ISOSORBIDE DINITRATE [Concomitant]
     Indication: HYPERTENSION
     Route: 048
  3. CLARAVIS [Suspect]
     Indication: SQUAMOUS CELL CARCINOMA OF THE CERVIX
     Route: 048
     Dates: start: 20091001, end: 20100101
  4. AMNESTEEM [Suspect]
     Indication: SQUAMOUS CELL CARCINOMA OF THE CERVIX
     Route: 048
     Dates: start: 20090801, end: 20091001
  5. AMNESTEEM [Suspect]
     Route: 048
     Dates: start: 20100201, end: 20100430
  6. DARVOCET-N 100 [Concomitant]
     Indication: PAIN
     Route: 048

REACTIONS (2)
  - DRUG INEFFECTIVE FOR UNAPPROVED INDICATION [None]
  - SQUAMOUS CELL CARCINOMA OF THE CERVIX [None]
